FAERS Safety Report 8687501 (Version 2)
Quarter: 2012Q4

REPORT INFORMATION
  Report Type: 
  Country: DE (occurrence: CA)
  Receive Date: 20120727
  Receipt Date: 20120828
  Transmission Date: 20130627
  Serious: Yes (Hospitalization)
  Sender: FDA-Public Use
  Company Number: CA-FRI-1000037376

PATIENT
  Age: 77 Year
  Sex: Female

DRUGS (4)
  1. ROFLUMILAST [Suspect]
     Indication: CHRONIC OBSTRUCTIVE PULMONARY DISEASE
     Dosage: 500 mcg
     Route: 048
     Dates: start: 20120522, end: 20120709
  2. ELTROXIN [Concomitant]
  3. SPIRIVA [Concomitant]
  4. UNSPECIFIED MEDICATION [Concomitant]

REACTIONS (14)
  - Dyspnoea [Unknown]
  - Dysphagia [Unknown]
  - Heart rate irregular [Unknown]
  - Panic attack [Unknown]
  - Nausea [Unknown]
  - Diarrhoea [Unknown]
  - Pain in extremity [Unknown]
  - Decreased appetite [Unknown]
  - Anxiety [Unknown]
  - Headache [Unknown]
  - Insomnia [Unknown]
  - Tremor [Unknown]
  - Weight decreased [Unknown]
  - Palpitations [Unknown]
